FAERS Safety Report 16537786 (Version 2)
Quarter: 2019Q4

REPORT INFORMATION
  Report Type: Report from Study
  Country: US (occurrence: US)
  Receive Date: 20190708
  Receipt Date: 20191022
  Transmission Date: 20200122
  Serious: No
  Sender: FDA-Public Use
  Company Number: PHEH2019US028428

PATIENT
  Sex: Female
  Weight: 81.18 kg

DRUGS (3)
  1. TREPROSTINIL. [Suspect]
     Active Substance: TREPROSTINIL
     Indication: PULMONARY ARTERIAL HYPERTENSION
     Dosage: 87 NG/KG/MIN, CONTINUOUS
     Route: 042
     Dates: start: 20190617
  2. TADALAFIL. [Concomitant]
     Active Substance: TADALAFIL
     Indication: PRODUCT USED FOR UNKNOWN INDICATION
     Dosage: UNK
     Route: 065
  3. AMBRISENTAN [Concomitant]
     Active Substance: AMBRISENTAN
     Indication: PRODUCT USED FOR UNKNOWN INDICATION
     Dosage: UNK
     Route: 065

REACTIONS (7)
  - Malaise [Unknown]
  - Somnolence [Unknown]
  - Fatigue [Unknown]
  - Cardiac output increased [Unknown]
  - Burning sensation [Unknown]
  - Pain [Unknown]
  - Abdominal distension [Unknown]
